FAERS Safety Report 6696329-7 (Version None)
Quarter: 2010Q2

REPORT INFORMATION
  Report Type: 
  Country: None (occurrence: None)
  Receive Date: 20100426
  Receipt Date: 20100415
  Transmission Date: 20101027
  Serious: Yes (Death)
  Sender: FDA-Public Use
  Company Number: ES-JNJFOC-20100403699

PATIENT
  Sex: Male
  Weight: 65 kg

DRUGS (5)
  1. DARUNAVIR [Suspect]
     Indication: HIV INFECTION
     Route: 048
  2. RITONAVIR [Concomitant]
     Indication: HIV INFECTION
     Route: 048
  3. ABACAVIR [Concomitant]
     Indication: HIV INFECTION
  4. KIVEXA [Concomitant]
     Indication: HIV INFECTION
  5. LIPID MODIFYING AGENTS [Concomitant]
     Indication: DYSLIPIDAEMIA

REACTIONS (1)
  - ACUTE MYOCARDIAL INFARCTION [None]
